FAERS Safety Report 8148348-1 (Version None)
Quarter: 2012Q1

REPORT INFORMATION
  Report Type: 
  Country: None (occurrence: None)
  Receive Date: 20120218
  Receipt Date: 20110523
  Transmission Date: 20120608
  Serious: No
  Sender: FDA-Public Use
  Company Number: US-ALLERGAN-1107072US

PATIENT
  Age: 49 Year
  Sex: Female

DRUGS (5)
  1. FISH OIL [Concomitant]
  2. VITAMIN B COMPLEX CAP [Concomitant]
  3. FIORICET [Concomitant]
  4. COQ 10 [Concomitant]
  5. BOTOX COSMETIC [Suspect]
     Indication: SKIN WRINKLING
     Dosage: 30 UNITS, SINGLE
     Route: 030
     Dates: start: 20110506, end: 20110506

REACTIONS (1)
  - EYELID PTOSIS [None]
